FAERS Safety Report 14493334 (Version 2)
Quarter: 2018Q1

REPORT INFORMATION
  Report Type: Report from Study
  Country: JP (occurrence: JP)
  Receive Date: 20180206
  Receipt Date: 20180326
  Transmission Date: 20180509
  Serious: Yes (Hospitalization)
  Sender: FDA-Public Use
  Company Number: JP-JNJFOC-20180202633

PATIENT
  Age: 47 Year
  Sex: Male
  Weight: 93 kg

DRUGS (6)
  1. YONDELIS [Suspect]
     Active Substance: TRABECTEDIN
     Indication: DEDIFFERENTIATED LIPOSARCOMA
     Dosage: 24 HOUR INFUSION
     Route: 042
     Dates: start: 20161108
  2. OXINORM (OXYCODONE HYDROCHLORIDE) [Concomitant]
     Active Substance: OXYCODONE HYDROCHLORIDE
     Route: 048
     Dates: start: 20161115
  3. YONDELIS [Suspect]
     Active Substance: TRABECTEDIN
     Indication: DEDIFFERENTIATED LIPOSARCOMA
     Route: 042
     Dates: start: 20161208
  4. TRAMAL [Concomitant]
     Active Substance: TRAMADOL
     Route: 048
     Dates: start: 20161115
  5. LYRICA [Concomitant]
     Active Substance: PREGABALIN
     Route: 048
     Dates: start: 20160608
  6. DEXAMETHASONE. [Concomitant]
     Active Substance: DEXAMETHASONE
     Indication: PREMEDICATION
     Route: 065
     Dates: end: 20161108

REACTIONS (7)
  - Anaemia [Recovering/Resolving]
  - Vomiting [Recovering/Resolving]
  - Alanine aminotransferase increased [Recovering/Resolving]
  - Lower gastrointestinal haemorrhage [Recovering/Resolving]
  - Diarrhoea [Unknown]
  - Aspartate aminotransferase increased [Recovering/Resolving]
  - Blood albumin decreased [Not Recovered/Not Resolved]

NARRATIVE: CASE EVENT DATE: 20161110
